FAERS Safety Report 10602636 (Version 1)
Quarter: 2014Q4

REPORT INFORMATION
  Report Type: Spontaneous
  Country: AR (occurrence: AR)
  Receive Date: 20141124
  Receipt Date: 20141124
  Transmission Date: 20150529
  Serious: Yes (Other)
  Sender: FDA-Public Use
  Company Number: AR-PFIZER INC-2014321829

PATIENT
  Age: 52 Year
  Sex: Female

DRUGS (1)
  1. AXITINIB [Suspect]
     Active Substance: AXITINIB
     Dosage: 5 MG, 2X/DAY
     Dates: start: 201308

REACTIONS (2)
  - Dysgeusia [Unknown]
  - Neutropenia [Unknown]
